FAERS Safety Report 5354790-4 (Version None)
Quarter: 2007Q2

REPORT INFORMATION
  Report Type: 
  Country: None (occurrence: None)
  Receive Date: 20070612
  Receipt Date: 20070531
  Transmission Date: 20071010
  Serious: Yes (Other)
  Sender: FDA-Public Use
  Company Number: TR-PFIZER INC-2007045343

PATIENT
  Age: 45 Year
  Sex: Female

DRUGS (5)
  1. PREGABALIN [Suspect]
     Indication: NEURALGIA
     Route: 048
  2. RAMIPRIL [Concomitant]
  3. INDAPAMIDE [Concomitant]
  4. AMITRIPTYLINE HYDROCHLORIDE [Concomitant]
  5. DICLOFENAC [Concomitant]

REACTIONS (3)
  - SALIVARY HYPERSECRETION [None]
  - SPEECH DISORDER [None]
  - THYROIDECTOMY [None]
